FAERS Safety Report 11694123 (Version 2)
Quarter: 2016Q2

REPORT INFORMATION
  Report Type: Report from Study
  Country: US (occurrence: US)
  Receive Date: 20151103
  Receipt Date: 20160503
  Transmission Date: 20160815
  Serious: Yes (Death, Other)
  Sender: FDA-Public Use
  Company Number: US-ARIAD PHARMACEUTICALS, INC-2015US005657

PATIENT
  Age: 53 Year
  Sex: Female

DRUGS (1)
  1. ICLUSIG [Suspect]
     Active Substance: PONATINIB
     Indication: ACUTE LYMPHOCYTIC LEUKAEMIA
     Dosage: 30 MG, QD
     Route: 048
     Dates: start: 20141112

REACTIONS (10)
  - Immunosuppression [Not Recovered/Not Resolved]
  - Skin exfoliation [Unknown]
  - Squamous cell carcinoma of the tongue [Not Recovered/Not Resolved]
  - Oral mucosal exfoliation [Unknown]
  - Skin lesion [Unknown]
  - Decreased appetite [Unknown]
  - Death [Fatal]
  - Facial wasting [Not Recovered/Not Resolved]
  - Erythema [Unknown]
  - Tachycardia [Unknown]

NARRATIVE: CASE EVENT DATE: 20160409
